FAERS Safety Report 5963988-3 (Version None)
Quarter: 2008Q4

REPORT INFORMATION
  Report Type: 
  Country: None (occurrence: None)
  Receive Date: 20081120
  Receipt Date: 20081107
  Transmission Date: 20090506
  Serious: Yes (Life-Threatening)
  Sender: FDA-Public Use
  Company Number: CIR-FI-033-08

PATIENT
  Age: 73 Year
  Sex: Female

DRUGS (11)
  1. CIRCADIN (MELATONIN) (MELATONIN) [Suspect]
     Indication: SLEEP DISORDER
     Dosage: 2 MG (2 MG, 1 IN 1 D) ORAL
     Route: 048
     Dates: start: 20080909, end: 20080916
  2. WARFARIN SODIUM [Suspect]
     Indication: ATRIAL FIBRILLATION
     Dosage: UNK (24 MG, 1 IN 1 WK) ORAL; UNK (20 MG, 1 IN 1 WK), ORAL
     Route: 048
     Dates: start: 20080909, end: 20080916
  3. WARFARIN SODIUM [Suspect]
     Indication: ATRIAL FIBRILLATION
     Dosage: UNK (24 MG, 1 IN 1 WK) ORAL; UNK (20 MG, 1 IN 1 WK), ORAL
     Route: 048
     Dates: start: 20080919
  4. RENITEC (ENALAPRIL) [Concomitant]
  5. EMCONCOR (BISOPROLOL) [Concomitant]
  6. FURESIS COM (FURESIS COMP) [Concomitant]
  7. VI-SIBLIN S (PLANTAGO OVATA HUSK) [Concomitant]
  8. RISPERDAL [Concomitant]
  9. LYRICA [Concomitant]
  10. VENTOLINE (SALBUTAMOL) [Concomitant]
  11. FLIXOTIDE (FLUTICASONE) [Concomitant]

REACTIONS (2)
  - DRUG INTERACTION [None]
  - INTERNATIONAL NORMALISED RATIO INCREASED [None]
